FAERS Safety Report 21474532 (Version 2)
Quarter: 2022Q4

REPORT INFORMATION
  Report Type: Report from Study
  Country: US (occurrence: US)
  Receive Date: 20221018
  Receipt Date: 20221021
  Transmission Date: 20230113
  Serious: Yes (Other)
  Sender: FDA-Public Use
  Company Number: US-TAKEDA-2022TUS074737

PATIENT
  Age: 27 Year
  Sex: Male

DRUGS (3)
  1. ADVATE [Suspect]
     Active Substance: ANTIHEMOPHILIC FACTOR, HUMAN RECOMBINANT
     Indication: Product used for unknown indication
     Dosage: 3000 INTERNATIONAL UNIT
     Route: 042
  2. ADVATE [Suspect]
     Active Substance: ANTIHEMOPHILIC FACTOR, HUMAN RECOMBINANT
     Indication: Product used for unknown indication
     Dosage: 3000 INTERNATIONAL UNIT
     Route: 042
  3. ADVATE [Suspect]
     Active Substance: ANTIHEMOPHILIC FACTOR, HUMAN RECOMBINANT
     Indication: Product used for unknown indication
     Dosage: 3000 INTERNATIONAL UNIT
     Route: 042

REACTIONS (10)
  - Spontaneous haemorrhage [Recovered/Resolved]
  - Haemarthrosis [Recovering/Resolving]
  - Contusion [Unknown]
  - Animal bite [Unknown]
  - Tendon rupture [Recovered/Resolved]
  - Joint injury [Unknown]
  - Animal attack [Unknown]
  - Synovial disorder [Unknown]
  - Limb injury [Recovering/Resolving]
  - Extra dose administered [Recovered/Resolved]

NARRATIVE: CASE EVENT DATE: 20200114
